FAERS Safety Report 8407235 (Version 2)
Quarter: 2013Q2

REPORT INFORMATION
  Report Type: Spontaneous
  Country: US (occurrence: None)
  Receive Date: 20111227
  Receipt Date: 20120426
  Transmission Date: 20140414
  Serious: No
  Sender: FDA-Public Use
  Company Number: PHEH2011US06605

PATIENT
  Age: 39 Year
  Sex: Female

DRUGS (9)
  1. GILENYA [Suspect]
     Indication: MULTIPLE SCLEROSIS
     Dosage: 0.5 MG, QD, ORAL
     Route: 048
     Dates: start: 20110427
  2. LEXAPRO [Concomitant]
  3. SUDAFED 12 HOUR [Concomitant]
  4. OMEPRAZOLE [Concomitant]
  5. ACAQI [Concomitant]
  6. VITAMIN E [Concomitant]
  7. VITAMIN D (ERGOCALCIFEROL) [Concomitant]
  8. MEGA RED [Concomitant]
  9. MULTIVITAMINS (ASCORBIC ACID, ERGOCALCIFEROL, FOLIC ACID, NICOTINAMIDE, PANTHENOL, RETINOL, RIBOFLAVIN, THIAMINE HYDROCHLORIDE) [Concomitant]

REACTIONS (2)
  - HYPOAESTHESIA [None]
  - PARAESTHESIA [None]
